FAERS Safety Report 8278003 (Version 2)
Quarter: 2013Q4

REPORT INFORMATION
  Report Type: Spontaneous
  Country: US (occurrence: US)
  Receive Date: 20111207
  Receipt Date: 20131119
  Transmission Date: 20140711
  Serious: Yes (Other)
  Sender: FDA-Public Use
  Company Number: US-ROCHE-1019505

PATIENT
  Age: 47 Year
  Sex: Female
  Weight: 67.19 kg

DRUGS (2)
  1. ACCUTANE [Suspect]
     Indication: ACNE
     Route: 065
     Dates: start: 20070829, end: 20070911
  2. SOTRET [Suspect]
     Indication: ACNE
     Route: 065
     Dates: start: 200707, end: 200709

REACTIONS (5)
  - Colitis ulcerative [Unknown]
  - Inflammatory bowel disease [Unknown]
  - Injury [Unknown]
  - Depression [Not Recovered/Not Resolved]
  - Irritable bowel syndrome [Unknown]
